FAERS Safety Report 8580842-1 (Version None)
Quarter: 2012Q3

REPORT INFORMATION
  Report Type: 
  Country: None (occurrence: None)
  Receive Date: 20120726
  Receipt Date: 20120629
  Transmission Date: 20120928
  Serious: Yes (Hospitalization)
  Sender: FDA-Public Use
  Company Number: 1338206

PATIENT
  Age: 79 Year
  Sex: Male
  Weight: 54 kg

DRUGS (4)
  1. METHOTREXATE [Suspect]
     Indication: HEAD AND NECK CANCER
     Dosage: 60 MG 1 WEEK, INTRAVENOUS
     Route: 042
     Dates: start: 20120528
  2. SCUTELLARIA LATERIFLORA [Concomitant]
  3. GANODERMA LUCIDUM [Concomitant]
  4. RADIX SALVAE MILTIIORRHIZAE [Concomitant]

REACTIONS (4)
  - BLOOD MAGNESIUM INCREASED [None]
  - ALANINE AMINOTRANSFERASE INCREASED [None]
  - BLOOD CALCIUM INCREASED [None]
  - BLOOD PHOSPHORUS INCREASED [None]
